FAERS Safety Report 4751726-1 (Version None)
Quarter: 2005Q3

REPORT INFORMATION
  Report Type: 
  Country: None (occurrence: None)
  Receive Date: 20050824
  Receipt Date: 20050822
  Transmission Date: 20060218
  Serious: Yes (Other)
  Sender: FDA-Public Use
  Company Number: AT-SANOFI-SYNTHELABO-F01200501626

PATIENT
  Sex: Male

DRUGS (5)
  1. OXALIPLATIN [Suspect]
     Indication: COLON CANCER
     Route: 042
     Dates: start: 20050620, end: 20050620
  2. CAPECITABINE [Suspect]
     Dosage: 1000 MG/M2 TWICE DAILY FOR 2 WEEKS, Q3W
     Route: 048
     Dates: start: 20050620
  3. BEVACIZUMAB [Suspect]
     Route: 042
     Dates: start: 20050620, end: 20050620
  4. CONCOR [Concomitant]
     Dates: start: 20050415
  5. PANTOPRAZOLE SODIUM [Concomitant]

REACTIONS (2)
  - HYPERCHOLESTEROLAEMIA [None]
  - HYPERTRIGLYCERIDAEMIA [None]
